FAERS Safety Report 6395019-8 (Version None)
Quarter: 2009Q4

REPORT INFORMATION
  Report Type: 
  Country: None (occurrence: None)
  Receive Date: 20091009
  Receipt Date: 20090930
  Transmission Date: 20100525
  Serious: Yes (Other)
  Sender: FDA-Public Use
  Company Number: JP-BRISTOL-MYERS SQUIBB COMPANY-14808794

PATIENT
  Sex: Male

DRUGS (7)
  1. ABILIFY [Suspect]
     Indication: SCHIZOPHRENIA
     Route: 048
     Dates: end: 20090918
  2. RISPERDAL [Suspect]
     Route: 048
     Dates: end: 20090918
  3. LONASEN [Suspect]
     Dosage: UNK-18SEP09. RESTARTED WITH 8 MG ON 24SEP09.
     Route: 048
  4. CHLORPROMAZINE [Suspect]
     Route: 048
     Dates: end: 20090918
  5. TASMOLIN [Suspect]
     Route: 048
     Dates: end: 20090918
  6. MAGNESIUM OXIDE [Suspect]
     Route: 048
     Dates: end: 20090918
  7. GLUCOBAY [Suspect]
     Route: 048
     Dates: end: 20090918

REACTIONS (2)
  - ILEUS [None]
  - URINARY RETENTION [None]
